FAERS Safety Report 10595994 (Version 1)
Quarter: 2014Q4

REPORT INFORMATION
  Report Type: Other
  Country: HU (occurrence: HU)
  Receive Date: 20141120
  Receipt Date: 20141120
  Transmission Date: 20150529
  Serious: Yes (Hospitalization)
  Sender: FDA-Public Use
  Company Number: HU-ENDO PHARMACEUTICALS INC-APIR20140019

PATIENT
  Age: 55 Year
  Sex: Female

DRUGS (10)
  1. LEVOTHYROXINE [Concomitant]
     Active Substance: LEVOTHYROXINE
     Indication: THYROID HORMONE REPLACEMENT THERAPY
     Route: 065
  2. ALPRAZOLAM IR TABLETS [Suspect]
     Active Substance: ALPRAZOLAM
     Route: 065
     Dates: start: 2014, end: 2014
  3. ESOMEPRAZOLE [Concomitant]
     Active Substance: ESOMEPRAZOLE
     Indication: GASTROOESOPHAGEAL REFLUX DISEASE
     Route: 065
  4. ALPRAZOLAM IR TABLETS [Suspect]
     Active Substance: ALPRAZOLAM
     Indication: PANIC DISORDER
     Dosage: UNKNOWN
     Route: 065
     Dates: start: 2004, end: 2013
  5. ALPRAZOLAM IR TABLETS [Suspect]
     Active Substance: ALPRAZOLAM
     Route: 065
     Dates: start: 2014
  6. ALPRAZOLAM IR TABLETS [Suspect]
     Active Substance: ALPRAZOLAM
     Route: 065
     Dates: start: 2014, end: 2014
  7. ALLOPURINOL. [Concomitant]
     Active Substance: ALLOPURINOL
     Indication: PRODUCT USED FOR UNKNOWN INDICATION
     Route: 065
  8. GLULISINE INSULIN [Concomitant]
     Indication: TYPE 2 DIABETES MELLITUS
     Dosage: UNKNOWN
     Route: 065
  9. METOPROLOL [Concomitant]
     Active Substance: METOPROLOL
     Indication: HYPERTENSION
     Route: 065
  10. GLARGINE INSULIN [Concomitant]
     Active Substance: INSULIN GLARGINE
     Indication: TYPE 2 DIABETES MELLITUS
     Dosage: UNKNOWN
     Route: 065

REACTIONS (1)
  - Pseudophaeochromocytoma [Recovering/Resolving]

NARRATIVE: CASE EVENT DATE: 201401
